FAERS Safety Report 9789702 (Version 1)
Quarter: 2013Q4

REPORT INFORMATION
  Report Type: Spontaneous
  Country: IT (occurrence: None)
  Receive Date: 20131227
  Receipt Date: 20131227
  Transmission Date: 20140711
  Serious: Yes (Hospitalization)
  Sender: FDA-Public Use
  Company Number: 2013AP010769

PATIENT
  Age: 66 Year
  Sex: Female

DRUGS (2)
  1. LEVOFLOXACIN (LEVOFLOXACIN) [Suspect]
     Indication: CHRONIC OBSTRUCTIVE PULMONARY DISEASE
     Dates: start: 20131024, end: 20131027
  2. TAVOR /00273201/ (LORAZEPAM) [Concomitant]

REACTIONS (5)
  - Confabulation [None]
  - Confusional state [None]
  - Disorientation [None]
  - Hallucination [None]
  - Confusional state [None]
